FAERS Safety Report 5654617-7 (Version None)
Quarter: 2008Q1

REPORT INFORMATION
  Report Type: 
  Country: None (occurrence: None)
  Receive Date: 20080219
  Receipt Date: 20080104
  Transmission Date: 20080703
  Serious: No
  Sender: FDA-Public Use
  Company Number: WAES 0801USA00538

PATIENT
  Age: 60 Year
  Sex: Male

DRUGS (13)
  1. JANUVIA [Suspect]
     Indication: DIABETES MELLITUS
     Dosage: 100 MG/DAILY/PO
     Route: 048
     Dates: start: 20071219
  2. ALTACE [Concomitant]
  3. AVODART [Concomitant]
  4. CYMBALTA [Concomitant]
  5. FLOMAX (MORNIFLUMATE) [Concomitant]
  6. KLONOPIN [Concomitant]
  7. NEXIUM [Concomitant]
  8. PROVIGIL [Concomitant]
  9. TOPROL-XL [Concomitant]
  10. TRICOR [Concomitant]
  11. VYTORIN [Concomitant]
  12. ASPIRIN [Concomitant]
  13. METFORMIN [Concomitant]

REACTIONS (2)
  - DIARRHOEA [None]
  - DRUG INEFFECTIVE [None]
